FAERS Safety Report 21455278 (Version 1)
Quarter: 2022Q4

REPORT INFORMATION
  Report Type: Spontaneous
  Country: GB (occurrence: GB)
  Receive Date: 20221014
  Receipt Date: 20221014
  Transmission Date: 20230112
  Serious: Yes (Life-Threatening, Other)
  Sender: FDA-Public Use
  Company Number: None

PATIENT
  Age: 78 Year
  Sex: Female

DRUGS (2)
  1. SUGAMMADEX SODIUM [Suspect]
     Active Substance: SUGAMMADEX SODIUM
     Indication: Preoperative care
     Dosage: UNK
     Dates: start: 20220222
  2. TARGOCID [Suspect]
     Active Substance: TEICOPLANIN
     Indication: Preoperative care
     Dosage: 400 MILLIGRAM
     Route: 042
     Dates: start: 20220222

REACTIONS (1)
  - Anaphylactic reaction [Recovered/Resolved]

NARRATIVE: CASE EVENT DATE: 20220222
